FAERS Safety Report 12458541 (Version 1)
Quarter: 2016Q2

REPORT INFORMATION
  Report Type: Spontaneous
  Country: CA (occurrence: None)
  Receive Date: 20160610
  Receipt Date: 20160610
  Transmission Date: 20160815
  Serious: Yes (Other)
  Sender: FDA-Public Use
  Company Number: None

PATIENT
  Age: 67 Year
  Sex: Female
  Weight: 65.55 kg

DRUGS (13)
  1. TURMERIC [Concomitant]
     Active Substance: TURMERIC
  2. ELTROXIN [Concomitant]
     Active Substance: LEVOTHYROXINE
  3. RHIZOME EXTRACT [Concomitant]
  4. HYDROCHLOROTHIAZIDE. [Concomitant]
     Active Substance: HYDROCHLOROTHIAZIDE
  5. BIOTIN [Concomitant]
     Active Substance: BIOTIN
  6. RANITIDINE. [Concomitant]
     Active Substance: RANITIDINE
  7. ROBITUSSIN (GUAIFENESIN) [Concomitant]
     Active Substance: GUAIFENESIN
  8. PX APO-NAPROXEN/NAPROXEN-ORAL 500 MG TABLETS [Suspect]
     Active Substance: NAPROXEN
     Indication: INFLAMMATION
     Dosage: 2 PILLS TWICE DAILY BY MOUTH
     Route: 048
     Dates: start: 20160505, end: 20160506
  9. ATORVASTATIN [Concomitant]
     Active Substance: ATORVASTATIN
  10. VITAMIN D3 [Concomitant]
     Active Substance: CHOLECALCIFEROL
  11. PX APO-NAPROXEN/NAPROXEN-ORAL 500 MG TABLETS [Suspect]
     Active Substance: NAPROXEN
     Indication: PAIN
     Dosage: 2 PILLS TWICE DAILY BY MOUTH
     Route: 048
     Dates: start: 20160505, end: 20160506
  12. PX APO-NAPROXEN/NAPROXEN-ORAL 500 MG TABLETS [Suspect]
     Active Substance: NAPROXEN
     Indication: HYPERKERATOSIS
     Dosage: 2 PILLS TWICE DAILY BY MOUTH
     Route: 048
     Dates: start: 20160505, end: 20160506
  13. GRAPE SEED EXTRACT [Concomitant]
     Active Substance: GRAPE SEED EXTRACT

REACTIONS (6)
  - Chills [None]
  - Vomiting [None]
  - Abdominal pain [None]
  - Intestinal haemorrhage [None]
  - Rhinorrhoea [None]
  - Nausea [None]

NARRATIVE: CASE EVENT DATE: 20160506
